FAERS Safety Report 5628464-6 (Version None)
Quarter: 2008Q1

REPORT INFORMATION
  Report Type: 
  Country: None (occurrence: None)
  Receive Date: 20080215
  Receipt Date: 20080206
  Transmission Date: 20080703
  Serious: Yes (Disabling, Other)
  Sender: FDA-Public Use
  Company Number: CA-PFIZER INC-2008003895

PATIENT
  Sex: Male

DRUGS (11)
  1. CHANTIX [Suspect]
     Indication: SMOKING CESSATION THERAPY
     Route: 048
     Dates: start: 20071210, end: 20071230
  2. EZETROL [Concomitant]
     Indication: DYSLIPIDAEMIA
     Route: 048
  3. LIPITOR [Concomitant]
     Indication: DYSLIPIDAEMIA
     Route: 048
  4. LOSEC I.V. [Concomitant]
     Indication: DYSPEPSIA
     Route: 048
  5. BEZALIP - SLOW RELEASE [Concomitant]
     Indication: HYPERTENSION
     Route: 048
  6. DOMPERIDONE [Concomitant]
     Indication: MUSCLE SPASMS
     Route: 048
  7. LOTENSIN [Concomitant]
     Indication: HYPERTENSION
     Dosage: DAILY DOSE:10MG
     Route: 048
  8. CALCITE D [Concomitant]
     Indication: OSTEOPOROSIS
     Route: 048
  9. FOSAMAX [Concomitant]
     Indication: OSTEOPOROSIS
     Dosage: DAILY DOSE:70MG
     Route: 048
  10. COUMADIN [Concomitant]
     Route: 048
  11. TYLENOL (CAPLET) [Concomitant]
     Route: 048

REACTIONS (5)
  - INSOMNIA [None]
  - NIGHTMARE [None]
  - PYREXIA [None]
  - SURGERY [None]
  - VOMITING [None]
